FAERS Safety Report 4898137-6 (Version None)
Quarter: 2006Q1

REPORT INFORMATION
  Report Type: 
  Country: None (occurrence: None)
  Receive Date: 20060201
  Receipt Date: 20040317
  Transmission Date: 20060701
  Serious: Yes (Hospitalization)
  Sender: FDA-Public Use
  Company Number: US-ABBOTT-04P-163-0253894-02

PATIENT
  Sex: Male

DRUGS (23)
  1. RITONAVIR SOFT GELATIN CAPSULES [Suspect]
     Indication: HIV INFECTION
     Route: 048
     Dates: start: 20030827, end: 20040401
  2. RITONAVIR SOFT GELATIN CAPSULES [Suspect]
     Route: 048
     Dates: start: 20040420
  3. TIPRANAVIR [Concomitant]
     Indication: HIV INFECTION
     Dates: start: 20030827, end: 20040401
  4. TIPRANAVIR [Concomitant]
     Route: 048
     Dates: start: 20040420
  5. FUZEON [Concomitant]
     Indication: HIV INFECTION
     Route: 058
     Dates: start: 20040420
  6. FUZEON [Concomitant]
     Route: 058
     Dates: start: 20030427, end: 20040401
  7. EMTRICITABINE [Concomitant]
     Indication: HIV INFECTION
     Dates: start: 20030427, end: 20040401
  8. EMTRICITABINE [Concomitant]
     Route: 048
     Dates: start: 20040420
  9. VIREAD [Concomitant]
     Indication: HIV INFECTION
     Route: 048
     Dates: start: 20030827, end: 20040401
  10. VIREAD [Concomitant]
     Route: 048
     Dates: start: 20040420
  11. ATENOLOL [Concomitant]
     Indication: DRUG USE FOR UNKNOWN INDICATION
  12. ZETIA [Concomitant]
     Indication: DRUG USE FOR UNKNOWN INDICATION
  13. FENOFIBRATE [Concomitant]
     Indication: DRUG USE FOR UNKNOWN INDICATION
  14. ATORVASTATIN CALCIUM [Concomitant]
     Indication: DRUG USE FOR UNKNOWN INDICATION
  15. ROSIGLITAZONE MALEATE [Concomitant]
     Indication: DRUG USE FOR UNKNOWN INDICATION
  16. CLARITHROMYCIN [Concomitant]
     Indication: DRUG USE FOR UNKNOWN INDICATION
  17. DAPSONE [Concomitant]
     Indication: DRUG USE FOR UNKNOWN INDICATION
  18. SERTRALINE HYDROCHLORIDE [Concomitant]
     Indication: DRUG USE FOR UNKNOWN INDICATION
  19. CENTRUM [Concomitant]
     Indication: DRUG USE FOR UNKNOWN INDICATION
  20. GABAPENTIN [Concomitant]
     Indication: DRUG USE FOR UNKNOWN INDICATION
  21. OMEPRAZOLE [Concomitant]
     Indication: DRUG USE FOR UNKNOWN INDICATION
  22. FEXOFENADINE HYDROCHLORIDE [Concomitant]
     Indication: DRUG USE FOR UNKNOWN INDICATION
  23. FINASTERIDE [Concomitant]
     Indication: DRUG USE FOR UNKNOWN INDICATION

REACTIONS (9)
  - ACIDOSIS [None]
  - BLOOD CREATININE INCREASED [None]
  - CARDIAC FAILURE CONGESTIVE [None]
  - COUGH [None]
  - DIALYSIS [None]
  - FLUID OVERLOAD [None]
  - HAEMODIALYSIS [None]
  - KIDNEY ENLARGEMENT [None]
  - RENAL FAILURE [None]
